FAERS Safety Report 5127918-9 (Version None)
Quarter: 2006Q4

REPORT INFORMATION
  Report Type: 
  Country: None (occurrence: None)
  Receive Date: 20061013
  Receipt Date: 20061013
  Transmission Date: 20070319
  Serious: Yes (Hospitalization)
  Sender: FDA-Public Use
  Company Number: None

PATIENT
  Sex: Female
  Weight: 62 kg

DRUGS (2)
  1. BONIVA [Suspect]
     Indication: OSTEOPOROSIS
     Dosage: IV
     Route: 042
     Dates: start: 20060920, end: 20060920
  2. FENTANYL [Suspect]
     Indication: PAIN
     Dosage: 50 MCG Q M72 HOURS
     Route: 062

REACTIONS (4)
  - FEELING HOT AND COLD [None]
  - HYPERHIDROSIS [None]
  - NAUSEA [None]
  - VOMITING [None]
